FAERS Safety Report 10771231 (Version 1)
Quarter: 2015Q1

REPORT INFORMATION
  Report Type: Spontaneous
  Country: US (occurrence: US)
  Receive Date: 20150206
  Receipt Date: 20150206
  Transmission Date: 20150721
  Serious: Yes (Death, Hospitalization)
  Sender: FDA-Public Use
  Company Number: US-BAUSCH-SYM-2014-22256

PATIENT
  Age: 65 Year
  Sex: Female
  Weight: 49.03 kg

DRUGS (1)
  1. XENAZINE [Suspect]
     Active Substance: TETRABENAZINE
     Indication: HUNTINGTON^S DISEASE
     Route: 048
     Dates: start: 20100512

REACTIONS (2)
  - Aspiration [Recovered/Resolved]
  - Death [Fatal]

NARRATIVE: CASE EVENT DATE: 2014
